FAERS Safety Report 26011093 (Version 1)
Quarter: 2025Q4

REPORT INFORMATION
  Report Type: Spontaneous
  Country: US (occurrence: None)
  Receive Date: 20251106
  Receipt Date: 20251106
  Transmission Date: 20260118
  Serious: Yes (Hospitalization)
  Sender: FDA-CTU
  Company Number: None

PATIENT
  Sex: Female

DRUGS (3)
  1. TEMOZOLOMIDE [Suspect]
     Active Substance: TEMOZOLOMIDE
     Indication: Brain neoplasm malignant
     Dosage: OTHER FREQUENCY : SEE EVENT;?
     Route: 048
  2. TEMOZOLOMIDE [Suspect]
     Active Substance: TEMOZOLOMIDE
     Indication: Brain neoplasm malignant
     Dosage: OTHER FREQUENCY : SEE EVENT;?
     Route: 048
  3. DEVICE [Suspect]
     Active Substance: DEVICE

REACTIONS (5)
  - Constipation [None]
  - Product supply issue [None]
  - Therapeutic product effect incomplete [None]
  - Medical device site reaction [None]
  - Hypophagia [None]
